FAERS Safety Report 9032649 (Version 1)
Quarter: 2013Q1

REPORT INFORMATION
  Report Type: Spontaneous
  Country: DE (occurrence: DE)
  Receive Date: 20130125
  Receipt Date: 20130125
  Transmission Date: 20140127
  Serious: Yes (Hospitalization, Other)
  Sender: FDA-Public Use
  Company Number: DE-B.I. PHARMACEUTICALS,INC./RIDGEFIELD-2013-DE-00152DE

PATIENT
  Age: 86 Year
  Sex: Male
  Weight: 78 kg

DRUGS (4)
  1. PRADAXA [Suspect]
     Indication: ATRIAL FIBRILLATION
     Dosage: 220 MG
     Dates: start: 201108
  2. LASIX [Concomitant]
  3. PROVAS [Concomitant]
  4. MARCUMAR [Concomitant]

REACTIONS (6)
  - Pleural effusion [Unknown]
  - Hospitalisation [Unknown]
  - Skin haemorrhage [Not Recovered/Not Resolved]
  - Fall [Unknown]
  - Dyspnoea [Unknown]
  - Femur fracture [Unknown]
